FAERS Safety Report 23985340 (Version 3)
Quarter: 2024Q3

REPORT INFORMATION
  Report Type: Spontaneous
  Country: NL (occurrence: NL)
  Receive Date: 20240618
  Receipt Date: 20240731
  Transmission Date: 20241016
  Serious: Yes (Life-Threatening, Hospitalization, Other)
  Sender: AUROBINDO
  Company Number: NL-PIRAMAL PHARMA LIMITED-2024-PPL-000429

PATIENT
  Age: 8 Year
  Sex: Female
  Weight: 22 kg

DRUGS (7)
  1. BACLOFEN [Interacting]
     Active Substance: BACLOFEN
     Indication: Cerebral palsy
     Dosage: 12 MICROGRAM, ONCE A DAY
     Route: 037
  2. BACLOFEN [Interacting]
     Active Substance: BACLOFEN
     Dosage: 50 MICROGRAM, ONCE A DAY
     Route: 037
  3. FENTANYL [Interacting]
     Active Substance: FENTANYL\FENTANYL CITRATE
     Indication: Product used for unknown indication
     Dosage: 25 MICROGRAM
     Route: 042
  4. FENTANYL [Interacting]
     Active Substance: FENTANYL\FENTANYL CITRATE
     Dosage: 50 MICROGRAM
     Route: 042
  5. FENTANYL [Interacting]
     Active Substance: FENTANYL\FENTANYL CITRATE
     Dosage: 25 MICROGRAM
     Route: 042
  6. PIRITRAMIDE [Interacting]
     Active Substance: PIRITRAMIDE
     Indication: Analgesic therapy
     Dosage: 7 MILLIGRAM
     Route: 042
     Dates: start: 2010, end: 2010
  7. VALPROIC ACID [Concomitant]
     Active Substance: VALPROIC ACID
     Indication: Product used for unknown indication
     Dosage: 200 MILLIGRAM,2DD
     Route: 065

REACTIONS (5)
  - Hypotonia [Recovered/Resolved]
  - Unresponsive to stimuli [Recovered/Resolved]
  - Drug interaction [Unknown]
  - Depressed level of consciousness [Recovered/Resolved]
  - Overdose [Unknown]

NARRATIVE: CASE EVENT DATE: 20100101
